FAERS Safety Report 8259076-6 (Version None)
Quarter: 2012Q2

REPORT INFORMATION
  Report Type: 
  Country: None (occurrence: None)
  Receive Date: 20120404
  Receipt Date: 20120330
  Transmission Date: 20120825
  Serious: Yes (Hospitalization, Other)
  Sender: FDA-Public Use
  Company Number: FR-PFIZER INC-2008158721

PATIENT
  Sex: Male

DRUGS (4)
  1. LAMIVUDINE [Suspect]
     Indication: HIV INFECTION
     Dosage: UNK
  2. DIDANOSINE [Suspect]
     Indication: HIV INFECTION
     Dosage: UNK
  3. ZIDOVUDINE [Suspect]
     Indication: HIV INFECTION
     Dosage: UNK
  4. NELFINAVIR MESYLATE [Suspect]
     Indication: HIV INFECTION
     Dosage: UNK

REACTIONS (5)
  - PREMATURE BABY [None]
  - TUMOUR FLARE [None]
  - FOETAL EXPOSURE DURING PREGNANCY [None]
  - MATERNAL DRUGS AFFECTING FOETUS [None]
  - NEUROFIBROMATOSIS [None]
